FAERS Safety Report 7319928-8 (Version None)
Quarter: 2011Q1

REPORT INFORMATION
  Report Type: 
  Country: None (occurrence: None)
  Receive Date: 20110228
  Receipt Date: 20110211
  Transmission Date: 20110831
  Serious: No
  Sender: FDA-Public Use
  Company Number: A0899629A

PATIENT
  Age: 43 Year
  Sex: Female
  Weight: 84.1 kg

DRUGS (7)
  1. LEXAPRO [Concomitant]
     Dosage: 10MG PER DAY
     Route: 048
     Dates: start: 20101101
  2. LAMICTAL [Suspect]
     Dosage: 200MG TWICE PER DAY
     Route: 065
     Dates: end: 20101101
  3. XANAX [Concomitant]
     Dosage: 1MG AS REQUIRED
     Route: 048
     Dates: start: 20080501
  4. VITAMIN B-12 [Concomitant]
  5. OPANA (OXYMORPHONE HCL) [Concomitant]
     Dosage: 15MG TWICE PER DAY
     Route: 048
  6. NUCYNTA [Concomitant]
     Route: 048
  7. KLONOPIN [Concomitant]
     Dosage: 1MG AT NIGHT
     Route: 048
     Dates: start: 20080501

REACTIONS (5)
  - VISION BLURRED [None]
  - WITHDRAWAL SYNDROME [None]
  - MALAISE [None]
  - DEPRESSION [None]
  - TREMOR [None]
